FAERS Safety Report 7112644-7 (Version None)
Quarter: 2010Q4

REPORT INFORMATION
  Report Type: 
  Country: None (occurrence: None)
  Receive Date: 20101119
  Receipt Date: 20101112
  Transmission Date: 20110411
  Serious: Yes (Other)
  Sender: FDA-Public Use
  Company Number: CHPA2010GB17756

PATIENT
  Sex: Male

DRUGS (4)
  1. PANTOPRAZOLE [Suspect]
     Dosage: UNK, UNK
     Route: 065
     Dates: start: 20101102
  2. OMEPRAZOLE [Suspect]
     Dosage: 20 MG, QD
     Route: 065
  3. OMEPRAZOLE [Suspect]
     Dosage: 40 MG, QD
     Route: 065
  4. FLUTICASONE PROPIONATE [Concomitant]
     Dosage: UNK, UNK
     Route: 045

REACTIONS (6)
  - BLOOD PRESSURE INCREASED [None]
  - EYE PAIN [None]
  - FLUSHING [None]
  - HEPATIC ENZYME INCREASED [None]
  - INTRAOCULAR PRESSURE INCREASED [None]
  - OCULAR HYPERAEMIA [None]
